FAERS Safety Report 9342258 (Version 2)
Quarter: 2013Q2

REPORT INFORMATION
  Report Type: Report from Study
  Country: FR (occurrence: FR)
  Receive Date: 20130611
  Receipt Date: 20130624
  Transmission Date: 20140414
  Serious: Yes (Hospitalization)
  Sender: FDA-Public Use
  Company Number: FR-GENZYME-CAMP-1002960

PATIENT
  Age: 51 Year
  Sex: Male

DRUGS (5)
  1. CAMPATH [Suspect]
     Indication: PROLYMPHOCYTIC LEUKAEMIA
     Dosage: 30 MG, UNK, PER CYCLE
     Route: 042
     Dates: start: 20130326
  2. POLARAMINE [Concomitant]
     Indication: PRODUCT USED FOR UNKNOWN INDICATION
     Dosage: 50 MG, QD
     Route: 065
     Dates: start: 20130323
  3. DAFALGAN [Concomitant]
     Indication: PRODUCT USED FOR UNKNOWN INDICATION
     Dosage: 500 MG, Q4HR
     Route: 065
     Dates: start: 20130323
  4. STILNOX [Concomitant]
     Indication: PRODUCT USED FOR UNKNOWN INDICATION
     Dosage: UNK
     Route: 065
     Dates: start: 20130323
  5. LYRICA [Concomitant]
     Indication: PRODUCT USED FOR UNKNOWN INDICATION
     Dosage: UNK
     Route: 065
     Dates: start: 20130323

REACTIONS (2)
  - Hypersensitivity [Recovered/Resolved]
  - Skin reaction [Recovered/Resolved]
